FAERS Safety Report 10850226 (Version 1)
Quarter: 2015Q1

REPORT INFORMATION
  Report Type: Spontaneous
  Country: US (occurrence: US)
  Receive Date: 20150221
  Receipt Date: 20150221
  Transmission Date: 20150721
  Serious: Yes (Hospitalization, Other)
  Sender: FDA-Public Use
  Company Number: US-NOVEN-14US010897

PATIENT
  Age: 52 Year
  Sex: Female
  Weight: 63.49 kg

DRUGS (3)
  1. MINIVELLE [Suspect]
     Active Substance: ESTRADIOL
     Indication: MENOPAUSE
     Dosage: .05 MG/DAY, UNK
     Route: 062
     Dates: start: 201410
  2. MINIVELLE [Suspect]
     Active Substance: ESTRADIOL
     Dosage: .05 MG/DAY, UNK
     Route: 062
     Dates: start: 2012
  3. PROGESTERONE. [Concomitant]
     Active Substance: PROGESTERONE
     Indication: HORMONE REPLACEMENT THERAPY
     Route: 061

REACTIONS (2)
  - Gallbladder disorder [Recovered/Resolved]
  - Product quality issue [Not Recovered/Not Resolved]

NARRATIVE: CASE EVENT DATE: 201310
